FAERS Safety Report 8339590-5 (Version None)
Quarter: 2012Q2

REPORT INFORMATION
  Report Type: 
  Country: None (occurrence: None)
  Receive Date: 20120507
  Receipt Date: 20120502
  Transmission Date: 20120825
  Serious: Yes (Death)
  Sender: FDA-Public Use
  Company Number: PHHY2012CH037631

PATIENT

DRUGS (6)
  1. REMERON [Suspect]
     Indication: DEPRESSION
     Dosage: 15 MG ORAL DOSE ? - ? TABLET PER DAY
     Route: 048
     Dates: start: 20050101
  2. LORAZEPAM [Concomitant]
  3. RITALIN [Suspect]
  4. IMOVANE [Concomitant]
  5. CHANTIX [Suspect]
     Indication: SMOKING CESSATION THERAPY
     Route: 048
     Dates: start: 20120101
  6. ESCITALOPRAM [Suspect]
     Indication: DEPRESSION
     Dosage: 10 MG, DAILY
     Route: 048
     Dates: start: 20050101

REACTIONS (1)
  - COMPLETED SUICIDE [None]
